FAERS Safety Report 21719311 (Version 1)
Quarter: 2022Q4

REPORT INFORMATION
  Report Type: Spontaneous
  Country: CH (occurrence: CH)
  Receive Date: 20221213
  Receipt Date: 20221213
  Transmission Date: 20230113
  Serious: Yes (Hospitalization)
  Sender: FDA-Public Use
  Company Number: CH-SM-2022-19522

PATIENT
  Age: 35 Year
  Sex: Female

DRUGS (4)
  1. OCREVUS [Suspect]
     Active Substance: OCRELIZUMAB
     Indication: Multiple sclerosis
     Dosage: OCRELIZUMAB INTRAVENOUS APPLICATION EVERY 6 MONTHS FROM 06/AUG/2021 (1ST DOSE) UNTIL RECENTLY.
     Route: 042
     Dates: start: 20210806, end: 20220303
  2. OCREVUS [Suspect]
     Active Substance: OCRELIZUMAB
     Dosage: OCRELIZUMAB INTRAVENOUS APPLICATION EVERY 6 MONTHS FROM 06/AUG/2021 (1ST DOSE) UNTIL RECENTLY..
     Route: 042
     Dates: start: 20221018
  3. FOLIC ACID [Concomitant]
     Active Substance: FOLIC ACID
     Dosage: FOLIC ACID 5 MG 1XDAY PO
     Route: 048
  4. UTROGESTAN [Concomitant]
     Active Substance: PROGESTERONE
     Dosage: UTROGESTAN (PROGESTERONE) 200 MG 1XDAY, VAGINAL APPLICATION
     Route: 067

REACTIONS (2)
  - Abortion spontaneous [Unknown]
  - Maternal exposure during pregnancy [Unknown]

NARRATIVE: CASE EVENT DATE: 20220907
